FAERS Safety Report 5417194-1 (Version None)
Quarter: 2007Q3

REPORT INFORMATION
  Report Type: 
  Country: None (occurrence: None)
  Receive Date: 20070816
  Receipt Date: 20070813
  Transmission Date: 20080115
  Serious: Yes (Life-Threatening)
  Sender: FDA-Public Use
  Company Number: GB-BOEHRINGER INGELHEIM PHARMACEUTICALS, INC.-2007-UK-02565UK

PATIENT
  Age: 75 Year
  Sex: Male

DRUGS (7)
  1. DIPYRIDAMOLE [Suspect]
     Indication: CARDIOVASCULAR EVENT PROPHYLAXIS
     Route: 048
     Dates: start: 20070718, end: 20070725
  2. AMLODIPINE [Concomitant]
  3. ASPIRIN [Concomitant]
  4. FINASTERIDE [Concomitant]
  5. IRBESARTAN [Concomitant]
  6. RAMIPRIL [Concomitant]
  7. SIMVASTATIN [Concomitant]

REACTIONS (1)
  - ANAPHYLACTIC REACTION [None]
